FAERS Safety Report 6747430-0 (Version None)
Quarter: 2010Q2

REPORT INFORMATION
  Report Type: 
  Country: None (occurrence: None)
  Receive Date: 20100528
  Receipt Date: 20100524
  Transmission Date: 20101027
  Serious: Yes (Death)
  Sender: FDA-Public Use
  Company Number: US-CELGENEUS-163-21880-10050288

PATIENT
  Sex: Male
  Weight: 82.174 kg

DRUGS (7)
  1. REVLIMID [Suspect]
     Route: 048
     Dates: start: 20100118, end: 20100331
  2. GEMCITABINE HCL [Suspect]
     Route: 051
     Dates: start: 20100118, end: 20100329
  3. METFORMIN HYDROCHLORIDE [Concomitant]
     Route: 065
     Dates: start: 20090201
  4. ASPIRIN [Concomitant]
     Indication: THROMBOSIS PROPHYLAXIS
     Route: 065
     Dates: start: 20100116
  5. LUNESTA [Concomitant]
     Indication: INSOMNIA
     Route: 065
     Dates: start: 20100125
  6. LISINOPRIL AND HYDROCHLOROTHIAZIDE [Concomitant]
     Indication: HYPERTENSION
     Dosage: 10-25MG
     Route: 065
     Dates: start: 20070701, end: 20100329
  7. LISINOPRIL [Concomitant]
     Indication: HYPERTENSION
     Route: 065
     Dates: start: 20070701, end: 20100330

REACTIONS (1)
  - DISEASE PROGRESSION [None]
